FAERS Safety Report 4447239-7 (Version None)
Quarter: 2004Q3

REPORT INFORMATION
  Report Type: 
  Country: None (occurrence: None)
  Receive Date: 20040908
  Receipt Date: 20040908
  Transmission Date: 20050211
  Serious: Yes (Hospitalization)
  Sender: FDA-Public Use
  Company Number: None

PATIENT
  Age: 57 Year
  Sex: Male

DRUGS (11)
  1. ETODOLAC [Suspect]
     Indication: PAIN
     Dosage: 600 MG BID
     Dates: start: 20030121
  2. ASPIRIN [Concomitant]
  3. HYDROCHLOROTHIAZIDE [Concomitant]
  4. METFORMIN HCL [Concomitant]
  5. OMEPRAZOLE [Concomitant]
  6. KCL TAB [Concomitant]
  7. VENLAFAXINE HCL [Concomitant]
  8. ATENOLOL [Concomitant]
  9. TERAZOSIN HCL [Concomitant]
  10. ACETAMINOPHEN [Concomitant]
  11. HYOSEYAMINE [Concomitant]

REACTIONS (1)
  - GASTROINTESTINAL HAEMORRHAGE [None]
